FAERS Safety Report 7757819-9 (Version None)
Quarter: 2011Q3

REPORT INFORMATION
  Report Type: 
  Country: None (occurrence: None)
  Receive Date: 20110918
  Receipt Date: 20110907
  Transmission Date: 20111222
  Serious: Yes (Hospitalization)
  Sender: FDA-Public Use
  Company Number: DE-ASTRAZENECA-2011SE51906

PATIENT
  Age: 23891 Day
  Sex: Female

DRUGS (6)
  1. METOPROLOL TARTRATE [Concomitant]
  2. LEVOTHYROXINE SODIUM [Concomitant]
  3. FASLODEX [Suspect]
     Indication: BREAST CANCER
     Route: 030
     Dates: start: 20110301, end: 20110801
  4. SIMVASTATIN [Concomitant]
  5. HYDROCHLOROTHIAZID [Concomitant]
  6. CANDESARTAN CILEXETIL [Concomitant]

REACTIONS (2)
  - MYOCARDIAL INFARCTION [None]
  - CORONARY ARTERY STENOSIS [None]
